FAERS Safety Report 11776262 (Version 1)
Quarter: 2015Q4

REPORT INFORMATION
  Report Type: Report from Study
  Country: DE (occurrence: DE)
  Receive Date: 20151125
  Receipt Date: 20151125
  Transmission Date: 20160304
  Serious: Yes (Hospitalization)
  Sender: FDA-Public Use
  Company Number: DE-ROCHE-1665551

PATIENT
  Age: 80 Year
  Sex: Male
  Weight: 71 kg

DRUGS (4)
  1. RANIBIZUMAB [Suspect]
     Active Substance: RANIBIZUMAB
     Indication: NEOVASCULAR AGE-RELATED MACULAR DEGENERATION
     Dosage: 8 DOSES
     Route: 050
     Dates: start: 20140430, end: 201508
  2. RANIBIZUMAB [Suspect]
     Active Substance: RANIBIZUMAB
     Dosage: 10 DOSES IN NON STUDY EYE (LEFT EYE)
     Route: 050
     Dates: start: 20140507, end: 201508
  3. RANIBIZUMAB [Suspect]
     Active Substance: RANIBIZUMAB
     Dosage: SINGLE DOSE (LEFT EYE)?07/OCT/2015, DATE OF LAST DOSE PRIOR TO SAE
     Route: 050
     Dates: start: 20150902
  4. RANIBIZUMAB [Suspect]
     Active Substance: RANIBIZUMAB
     Dosage: SINGLE DOSE (RIGHT EYE)?07/OCT/2015, DATE OF LAST DOSE PRIOR TO SAE
     Route: 050
     Dates: start: 20151007

REACTIONS (1)
  - Retinal haemorrhage [Not Recovered/Not Resolved]

NARRATIVE: CASE EVENT DATE: 20151103
